FAERS Safety Report 4364591-1 (Version None)
Quarter: 2004Q2

REPORT INFORMATION
  Report Type: 
  Country: None (occurrence: None)
  Receive Date: 20040525
  Receipt Date: 20040510
  Transmission Date: 20050107
  Serious: Yes (Other)
  Sender: FDA-Public Use
  Company Number: US013121

PATIENT
  Age: 41 Year
  Sex: Male
  Weight: 61.2356 kg

DRUGS (2)
  1. ACTIQ [Suspect]
     Indication: BACK PAIN
     Dosage: 400 MG QID BUCCAL
     Route: 002
     Dates: start: 20020709, end: 20020723
  2. MOTRIN [Concomitant]

REACTIONS (5)
  - AGGRESSION [None]
  - ANGER [None]
  - DEPRESSION [None]
  - DRUG INTERACTION [None]
  - MOOD ALTERED [None]
